FAERS Safety Report 9226470 (Version 1)
Quarter: 2013Q2

REPORT INFORMATION
  Report Type: Spontaneous
  Country: JP (occurrence: JP)
  Receive Date: 20130411
  Receipt Date: 20130411
  Transmission Date: 20140414
  Serious: Yes (Life-Threatening, Hospitalization, Other)
  Sender: FDA-Public Use
  Company Number: JP-009507513-1303JPN000679

PATIENT
  Age: 77 Year
  Sex: Female
  Weight: 44 kg

DRUGS (12)
  1. TEMODAL [Suspect]
     Indication: GLIOBLASTOMA MULTIFORME
     Dosage: 120 MG, UNK
     Route: 048
     Dates: start: 20130107, end: 20130206
  2. PREDONINE [Suspect]
     Indication: GLIOBLASTOMA MULTIFORME
     Dosage: 10 MG, BID
     Route: 048
     Dates: start: 20130108, end: 20130213
  3. EXCEGRAN [Concomitant]
     Indication: CONVULSION
     Dosage: 100 MG, QD
     Route: 048
     Dates: start: 20121227, end: 20130218
  4. DEPAS [Concomitant]
     Indication: ANXIETY
     Dosage: 0.5 MG, QD
     Route: 048
     Dates: start: 2012, end: 20130220
  5. TRINOSIN [Concomitant]
     Indication: GASTRITIS
     Dosage: 100 MG, TID
     Route: 048
     Dates: start: 20130101, end: 20130218
  6. LIVALO [Concomitant]
     Indication: DYSLIPIDAEMIA
     Dosage: 2 MG, QD
     Route: 048
     Dates: start: 2012, end: 20130220
  7. METHYCOBAL [Concomitant]
     Indication: PERIPHERAL NERVE LESION
     Dosage: 500 MICROGRAM, TID
     Route: 048
     Dates: start: 2012, end: 20130220
  8. FAMOTIDINE [Concomitant]
     Indication: GASTRITIS
     Dosage: 10 MG, QD
     Route: 048
     Dates: start: 20121205, end: 20130220
  9. PAXIL [Concomitant]
     Indication: ANXIETY
     Dosage: 10 MG, QD
     Route: 048
     Dates: start: 20130121, end: 20130220
  10. EQUA [Concomitant]
     Indication: DIABETES MELLITUS
     Dosage: 50 MG, BID
     Dates: start: 20130213
  11. NASEA [Concomitant]
     Indication: NAUSEA
     Dosage: 0.1 MG, QD
     Route: 048
     Dates: start: 20130107, end: 20130207
  12. BAKTAR [Concomitant]
     Indication: PNEUMOCYSTIS JIROVECII PNEUMONIA
     Dosage: UNK, QD
     Route: 048
     Dates: start: 20121205, end: 20130207

REACTIONS (6)
  - Pneumonia [Recovered/Resolved]
  - Platelet count decreased [Recovering/Resolving]
  - White blood cell count decreased [Recovered/Resolved]
  - Neutropenia [Recovered/Resolved]
  - Anaemia [Recovered/Resolved]
  - Urinary tract infection [Recovered/Resolved]
